FAERS Safety Report 9639026 (Version 1)
Quarter: 2013Q4

REPORT INFORMATION
  Report Type: Spontaneous
  Country: TR (occurrence: None)
  Receive Date: 20131018
  Receipt Date: 20131018
  Transmission Date: 20140711
  Serious: Yes (Hospitalization)
  Sender: FDA-Public Use
  Company Number: IMP_06845_2013

PATIENT
  Age: 45 Year
  Sex: Female

DRUGS (4)
  1. FENOFIBRATE [Suspect]
     Indication: HYPERTRIGLYCERIDAEMIA
  2. GLIMEPIRIDE [Concomitant]
  3. METFORMIN [Concomitant]
  4. PERINDOPRIL [Concomitant]

REACTIONS (8)
  - Myalgia [None]
  - Asthenia [None]
  - Fatigue [None]
  - Renal failure acute [None]
  - Rhabdomyolysis [None]
  - Liver disorder [None]
  - Infection [None]
  - Hypothyroidism [None]
